FAERS Safety Report 4503590-3 (Version None)
Quarter: 2004Q4

REPORT INFORMATION
  Report Type: 
  Country: None (occurrence: None)
  Receive Date: 20041117
  Receipt Date: 20040924
  Transmission Date: 20050328
  Serious: Yes (Other)
  Sender: FDA-Public Use
  Company Number: PHBS2004CL12834

PATIENT
  Age: 50 Year
  Sex: Female

DRUGS (1)
  1. TAREG [Suspect]
     Dosage: 80 MG, QD
     Route: 048
     Dates: start: 20040914, end: 20040916

REACTIONS (4)
  - DIZZINESS [None]
  - GASTRITIS [None]
  - HAEMOPTYSIS [None]
  - VOMITING [None]
